FAERS Safety Report 15289277 (Version 1)
Quarter: 2018Q3

REPORT INFORMATION
  Report Type: Spontaneous
  Country: JP (occurrence: JP)
  Receive Date: 20180817
  Receipt Date: 20180817
  Transmission Date: 20181010
  Serious: Yes (Death, Hospitalization, Other)
  Sender: FDA-Public Use
  Company Number: JP-MYLANLABS-2018M1061753

PATIENT
  Sex: Female

DRUGS (1)
  1. FLUDARABINE [Suspect]
     Active Substance: FLUDARABINE PHOSPHATE
     Indication: CHRONIC LYMPHOCYTIC LEUKAEMIA
     Route: 065
     Dates: start: 201311

REACTIONS (4)
  - Abdominal distension [Unknown]
  - Face oedema [Unknown]
  - Peripheral T-cell lymphoma unspecified [Fatal]
  - Sepsis [Fatal]

NARRATIVE: CASE EVENT DATE: 201602
